FAERS Safety Report 25030942 (Version 1)
Quarter: 2025Q1

REPORT INFORMATION
  Report Type: Spontaneous
  Country: US (occurrence: US)
  Receive Date: 20250303
  Receipt Date: 20250303
  Transmission Date: 20250409
  Serious: Yes (Hospitalization, Other)
  Sender: CSL BEHRING
  Company Number: US-BEH-2025196997

PATIENT
  Age: 41 Year
  Sex: Female

DRUGS (1)
  1. HUMATE-P [Suspect]
     Active Substance: HUMAN COAGULATION FACTOR VIII/VON WILLEBRAND FACTOR COMPLEX
     Indication: Von Willebrand^s disease
     Dosage: 3500 IU, 2X DAILY FOR 7 DAYS
     Route: 042
     Dates: start: 20250210

REACTIONS (8)
  - Drug hypersensitivity [Unknown]
  - Tongue dry [Unknown]
  - Herpes zoster [Unknown]
  - Pruritus [Unknown]
  - Erythema [Unknown]
  - Tongue erythema [Unknown]
  - Tongue eruption [Unknown]
  - Therapy interrupted [Unknown]

NARRATIVE: CASE EVENT DATE: 20250218
